FAERS Safety Report 7093968-9 (Version None)
Quarter: 2010Q4

REPORT INFORMATION
  Report Type: 
  Country: None (occurrence: None)
  Receive Date: 20101102
  Receipt Date: 20101018
  Transmission Date: 20110411
  Serious: Yes (Other)
  Sender: FDA-Public Use
  Company Number: COL_01770_2010

PATIENT
  Sex: Male

DRUGS (2)
  1. COLGATE PREVIDENT GEL RX UNSPECIFIED TOOTHPASTE [Suspect]
     Indication: DENTAL CARIES
     Dosage: (1 DF TID, [PEA SIZED AMOUNT] ORAL)
     Route: 048
     Dates: start: 20100306, end: 20100719
  2. VERAPAMIL [Concomitant]

REACTIONS (10)
  - ABDOMINAL DISTENSION [None]
  - DECREASED APPETITE [None]
  - FLATULENCE [None]
  - HEADACHE [None]
  - INAPPROPRIATE SCHEDULE OF DRUG ADMINISTRATION [None]
  - MUSCULAR WEAKNESS [None]
  - NAUSEA [None]
  - SUICIDAL IDEATION [None]
  - VISUAL IMPAIRMENT [None]
  - WEIGHT DECREASED [None]
